FAERS Safety Report 5988491-6 (Version None)
Quarter: 2008Q4

REPORT INFORMATION
  Report Type: 
  Country: None (occurrence: None)
  Receive Date: 20081204
  Receipt Date: 20081117
  Transmission Date: 20090506
  Serious: Yes (Hospitalization)
  Sender: FDA-Public Use
  Company Number: CIP08002359

PATIENT
  Age: 80 Year
  Sex: Female

DRUGS (3)
  1. RISEDRONATE SODIUM [Suspect]
     Indication: OSTEOPOROSIS
     Dosage: 2.5 MG DAILY, ORAL
     Route: 048
     Dates: start: 20031218, end: 20081021
  2. ALFAROL (ALFACALCIDOL) [Concomitant]
  3. EXCELASE (ANZYMES NOS) [Concomitant]

REACTIONS (4)
  - FEBRILE NEUTROPENIA [None]
  - SEPSIS [None]
  - TREMOR [None]
  - URINARY TRACT INFECTION [None]
